FAERS Safety Report 24237302 (Version 1)
Quarter: 2024Q3

REPORT INFORMATION
  Report Type: Spontaneous
  Country: US (occurrence: US)
  Receive Date: 20240822
  Receipt Date: 20240822
  Transmission Date: 20241017
  Serious: No
  Sender: APPCO PHARMA
  Company Number: US-Appco Pharma LLC-2160721

PATIENT
  Sex: Female

DRUGS (2)
  1. MODAFINIL [Suspect]
     Active Substance: MODAFINIL
     Indication: Fatigue
     Dates: start: 200905, end: 20240727
  2. PILOCARPINE [Concomitant]
     Active Substance: PILOCARPINE

REACTIONS (3)
  - Swollen tongue [Recovered/Resolved]
  - Tongue discomfort [Recovered/Resolved]
  - Glossodynia [Recovered/Resolved]

NARRATIVE: CASE EVENT DATE: 20240727
